FAERS Safety Report 8852480 (Version 3)
Quarter: 2013Q2

REPORT INFORMATION
  Report Type: Report from Study
  Country: JP (occurrence: JP)
  Receive Date: 20121022
  Receipt Date: 20130405
  Transmission Date: 20140414
  Serious: Yes (Life-Threatening, Other)
  Sender: FDA-Public Use
  Company Number: JP-009507513-1210JPN006438

PATIENT
  Age: 62 Year
  Sex: Female
  Weight: 49 kg

DRUGS (10)
  1. PEGINTRON [Suspect]
     Indication: CHRONIC HEPATITIS C
     Dosage: 1.5 MICROGRAM PER KILOGRAM, QW
     Route: 058
     Dates: start: 20120622, end: 20120628
  2. PEGINTRON [Suspect]
     Dosage: 0.75 MICROGRAM PER KILOGRAM, QW
     Route: 058
     Dates: start: 20120629, end: 20120809
  3. REBETOL [Suspect]
     Indication: CHRONIC HEPATITIS C
     Dosage: 400 MG, QD
     Route: 048
     Dates: start: 20120622, end: 20120704
  4. REBETOL [Suspect]
     Dosage: 200 MG, QD
     Route: 048
     Dates: start: 20120705, end: 20120809
  5. TELAVIC [Suspect]
     Indication: CHRONIC HEPATITIS C
     Dosage: 1500 MG, QD
     Route: 048
     Dates: start: 20120622, end: 20120809
  6. LIVACT [Concomitant]
     Indication: HYPOALBUMINAEMIA
     Dosage: 3 DF, QD
     Route: 048
     Dates: end: 20120913
  7. VOLTAREN SR [Concomitant]
     Indication: PROPHYLAXIS
     Dosage: DAILY DOSE UNKNOWN
     Route: 048
     Dates: start: 20120622, end: 20120802
  8. ALLOPURINOL [Concomitant]
     Dosage: 100 MG, QD
     Route: 048
     Dates: start: 20120626, end: 20120726
  9. BIOFERMIN (BACILLUS SUBTILIS (+) LACTOBACILLUS ACIDOPHILUS (+) STREPTO [Concomitant]
     Indication: PROPHYLAXIS
     Dosage: 3 DF, QD
     Route: 048
     Dates: start: 20120703
  10. RINDERON VG [Concomitant]
     Dosage: 1 TUBE/DAY
     Route: 061
     Dates: start: 20120703

REACTIONS (3)
  - Cerebral infarction [Recovered/Resolved with Sequelae]
  - Retinopathy [Recovered/Resolved]
  - Platelet count decreased [Not Recovered/Not Resolved]
